FAERS Safety Report 14573715 (Version 3)
Quarter: 2018Q2

REPORT INFORMATION
  Report Type: Spontaneous
  Country: FI (occurrence: FI)
  Receive Date: 20180226
  Receipt Date: 20180507
  Transmission Date: 20180711
  Serious: Yes (Hospitalization, Other)
  Sender: FDA-Public Use
  Company Number: PHHY2018FI031620

PATIENT
  Age: 17 Year

DRUGS (11)
  1. ETANERCEPT [Suspect]
     Active Substance: ETANERCEPT
     Dosage: 50 MG, QW
     Route: 058
     Dates: start: 20070301, end: 20070601
  2. CYCLOSPORIN A [Concomitant]
     Active Substance: CYCLOSPORINE
     Indication: PRODUCT USED FOR UNKNOWN INDICATION
     Dosage: 200 MG, QD
     Route: 065
     Dates: start: 20110501, end: 20130101
  3. ETANERCEPT [Suspect]
     Active Substance: ETANERCEPT
     Indication: PSORIASIS
     Dosage: 25 MG, QW
     Route: 058
     Dates: start: 20060101, end: 20070301
  4. METHOTREXATE. [Suspect]
     Active Substance: METHOTREXATE
     Dosage: 10 MG, UNK
     Route: 048
     Dates: start: 200704, end: 2007
  5. HUMIRA [Suspect]
     Active Substance: ADALIMUMAB
     Indication: PRODUCT USED FOR UNKNOWN INDICATION
     Dosage: 40 MG, Q2W
     Route: 058
     Dates: start: 20070601
  6. METHOTREXATE. [Suspect]
     Active Substance: METHOTREXATE
     Dosage: 10 MG, QW
     Route: 030
     Dates: start: 20090301
  7. HUMIRA [Suspect]
     Active Substance: ADALIMUMAB
     Dosage: 40 MG, QW
     Route: 058
     Dates: start: 20170101
  8. RISPERDAL [Suspect]
     Active Substance: RISPERIDONE
     Indication: PRODUCT USED FOR UNKNOWN INDICATION
     Dosage: UNK
     Route: 065
  9. METHOTREXATE. [Suspect]
     Active Substance: METHOTREXATE
     Dosage: 10-12.5 MG/WEEK
     Route: 065
  10. CIPRALAM [Concomitant]
     Indication: DEPRESSION
     Dosage: UNK
     Route: 065
  11. METHOTREXATE. [Suspect]
     Active Substance: METHOTREXATE
     Indication: PRODUCT USED FOR UNKNOWN INDICATION
     Dosage: 10 MG, QW
     Route: 030

REACTIONS (26)
  - Intraocular pressure increased [Unknown]
  - Weight increased [Recovered/Resolved]
  - Infection [Unknown]
  - Influenza [Recovered/Resolved]
  - Ileal ulcer [Unknown]
  - Lethargy [Unknown]
  - Arthritis [Recovered/Resolved]
  - H1N1 influenza [Unknown]
  - Cataract [Unknown]
  - Tonsillitis [Unknown]
  - Tendonitis [Unknown]
  - Mental disorder [Unknown]
  - Alanine aminotransferase abnormal [Recovered/Resolved]
  - Gambling disorder [Unknown]
  - Upper respiratory tract infection [Unknown]
  - Iritis [Unknown]
  - Iritis [Recovered/Resolved]
  - Iritis [Recovered/Resolved]
  - Fatigue [Unknown]
  - Psychotic disorder [Unknown]
  - Influenza [Recovered/Resolved]
  - Alanine aminotransferase abnormal [Unknown]
  - Anterior chamber cell [Unknown]
  - Tendonitis [Unknown]
  - Iritis [Recovered/Resolved]
  - Iritis [Not Recovered/Not Resolved]

NARRATIVE: CASE EVENT DATE: 20070101
